FAERS Safety Report 14957256 (Version 2)
Quarter: 2018Q2

REPORT INFORMATION
  Report Type: Spontaneous
  Country: US (occurrence: US)
  Receive Date: 20180531
  Receipt Date: 20180601
  Transmission Date: 20180711
  Serious: Yes (Life-Threatening, Hospitalization, Disabling, Other)
  Sender: FDA-Public Use
  Company Number: US-PFIZER INC-2017358249

PATIENT
  Sex: Male

DRUGS (2)
  1. AMIODARONE ZYDUS [Suspect]
     Active Substance: AMIODARONE
     Indication: ATRIAL FIBRILLATION
     Dosage: 200 MG, UNK
     Route: 048
     Dates: start: 201501
  2. AMIODARONE HCL [Suspect]
     Active Substance: AMIODARONE HYDROCHLORIDE
     Indication: ATRIAL FIBRILLATION
     Dosage: 200 MG, UNK
     Route: 048
     Dates: start: 201501

REACTIONS (14)
  - Pulmonary oedema [Unknown]
  - Cataract [Unknown]
  - Depression [Unknown]
  - Pulmonary embolism [Unknown]
  - Fatigue [Unknown]
  - Anaemia [Unknown]
  - Renal disorder [Unknown]
  - Chronic obstructive pulmonary disease [Unknown]
  - Pneumonia [Unknown]
  - Anxiety [Unknown]
  - Blindness [Unknown]
  - Thyroid disorder [Unknown]
  - Asthenia [Unknown]
  - Oedema [Unknown]

NARRATIVE: CASE EVENT DATE: 201501
